FAERS Safety Report 12648909 (Version 1)
Quarter: 2016Q3

REPORT INFORMATION
  Report Type: Report from Study
  Country: BR (occurrence: BR)
  Receive Date: 20160812
  Receipt Date: 20160812
  Transmission Date: 20161109
  Serious: Yes (Hospitalization, Other)
  Sender: FDA-Public Use
  Company Number: BR-JNJFOC-20160808457

PATIENT
  Age: 74 Year
  Sex: Female
  Weight: 55 kg

DRUGS (3)
  1. PREDNISONE. [Concomitant]
     Active Substance: PREDNISONE
     Route: 065
  2. SIMPONI [Suspect]
     Active Substance: GOLIMUMAB
     Indication: RHEUMATOID ARTHRITIS
     Route: 058
     Dates: start: 20131128
  3. TECNOMET [Concomitant]
     Active Substance: METHOTREXATE
     Route: 065

REACTIONS (3)
  - Back pain [Unknown]
  - Fatigue [Unknown]
  - Pneumonia [Unknown]

NARRATIVE: CASE EVENT DATE: 20160720
